FAERS Safety Report 5630276-4 (Version None)
Quarter: 2008Q1

REPORT INFORMATION
  Report Type: 
  Country: None (occurrence: None)
  Receive Date: 20080219
  Receipt Date: 20080211
  Transmission Date: 20080703
  Serious: Yes (Hospitalization)
  Sender: FDA-Public Use
  Company Number: CH-BAYER-200813071GPV

PATIENT
  Age: 34 Year
  Sex: Female

DRUGS (1)
  1. ADALAT [Suspect]
     Indication: TOCOLYSIS
     Route: 048
     Dates: start: 20080110, end: 20080112

REACTIONS (3)
  - DYSPNOEA [None]
  - LUNG DISORDER [None]
  - RESPIRATORY FAILURE [None]
